FAERS Safety Report 5253324-2 (Version None)
Quarter: 2007Q1

REPORT INFORMATION
  Report Type: 
  Country: None (occurrence: None)
  Receive Date: 20070301
  Receipt Date: 20070223
  Transmission Date: 20070707
  Serious: Yes (Death)
  Sender: FDA-Public Use
  Company Number: US-PURDUE-USA_2007_0026127

PATIENT
  Age: 22 Year
  Sex: Male

DRUGS (2)
  1. OXYCONTIN [Suspect]
     Indication: DRUG ABUSER
     Dosage: UNK, UNK
  2. METHADONE HCL [Suspect]
     Indication: DRUG ABUSER
     Dosage: UNK, UNK

REACTIONS (1)
  - MULTIPLE DRUG OVERDOSE ACCIDENTAL [None]
